FAERS Safety Report 15377572 (Version 2)
Quarter: 2022Q4

REPORT INFORMATION
  Report Type: Spontaneous
  Country: US (occurrence: US)
  Receive Date: 20180913
  Receipt Date: 20221008
  Transmission Date: 20230113
  Serious: Yes (Disabling, Other)
  Sender: FDA-Public Use
  Company Number: US-TEVA-2018-US-953615

PATIENT
  Age: 39 Year
  Sex: Female
  Weight: 52 kg

DRUGS (24)
  1. DOCETAXEL [Suspect]
     Active Substance: DOCETAXEL
     Indication: Invasive ductal breast carcinoma
     Dosage: 117 MG AT 75 MG/M2 EVERY THREE WEEKS , 6 CYCLES
     Route: 042
     Dates: start: 20140115, end: 20140507
  2. DOCETAXEL [Suspect]
     Active Substance: DOCETAXEL
     Dosage: 117 MG AT 75 MG/M2 EVERY THREE WEEKS , 6 CYCLES
     Route: 042
     Dates: start: 20140115, end: 20140507
  3. DOXORUBICIN HYDROCHLORIDE [Suspect]
     Active Substance: DOXORUBICIN HYDROCHLORIDE
     Indication: Invasive ductal breast carcinoma
     Dosage: 78 MG (AT 50 MG/M2) EVERY THREE WEEKS, 6 CYCLES
     Route: 042
     Dates: start: 20140115, end: 20140507
  4. DOCETAXEL [Suspect]
     Active Substance: DOCETAXEL
     Indication: Invasive ductal breast carcinoma
     Dosage: 117 MG AT 75 MG/M2 EVERY THREE WEEKS, 6 CYCLES
     Route: 042
     Dates: start: 20140115, end: 20140507
  5. DOCETAXEL [Suspect]
     Active Substance: DOCETAXEL
     Indication: Invasive ductal breast carcinoma
     Dosage: 117 MG AT 75 MG/M2 EVERY THREE WEEKS, 6 CYCLES
     Route: 042
     Dates: start: 20140115, end: 20140507
  6. DOCETAXEL [Suspect]
     Active Substance: DOCETAXEL
     Indication: Invasive ductal breast carcinoma
     Dosage: 117 MG AT 75 MG/M2 EVERY THREE WEEKS, 6 CYCLES
     Route: 042
     Dates: start: 20140115, end: 20140507
  7. DOCETAXEL [Suspect]
     Active Substance: DOCETAXEL
     Dosage: 117 MG AT 75 MG/M2 EVERY THREE WEEKS , 6 CYCLES
     Route: 065
     Dates: start: 20140115, end: 20140507
  8. CYCLOPHOSPHAMIDE [Suspect]
     Active Substance: CYCLOPHOSPHAMIDE
     Indication: Invasive ductal breast carcinoma
     Dosage: 780 MG (AT 500 MG/M2) EVERY THREE WEEKS, 6 CYCLES
     Route: 042
     Dates: start: 20140115, end: 20140507
  9. ACYCLOVIR [Concomitant]
     Active Substance: ACYCLOVIR
     Indication: Product used for unknown indication
     Dosage: 800 MILLIGRAM DAILY;
     Route: 048
  10. ATIVAN [Concomitant]
     Active Substance: LORAZEPAM
     Indication: Product used for unknown indication
     Dosage: 2 MILLIGRAM DAILY;  1 MG EVERY 12 HOURS AS NEEDED
     Route: 048
  11. DEXAMETHASONE SODIUM PHOSPHATE [Concomitant]
     Active Substance: DEXAMETHASONE SODIUM PHOSPHATE
     Indication: Product used for unknown indication
     Dosage: 10 MG
     Route: 042
     Dates: start: 20140115
  12. DEXAMETHASONE SODIUM PHOSPHATE [Concomitant]
     Active Substance: DEXAMETHASONE SODIUM PHOSPHATE
     Dosage: 12 MG
     Route: 042
     Dates: start: 20140205, end: 20140507
  13. DIPHENHYDRAMINE HYDROCHLORIDE [Concomitant]
     Active Substance: DIPHENHYDRAMINE HYDROCHLORIDE
     Indication: Product used for unknown indication
     Dosage: 25 MG
     Route: 042
     Dates: start: 20140115, end: 20140507
  14. PALONOSETRON HYDROCHLORIDE [Concomitant]
     Active Substance: PALONOSETRON HYDROCHLORIDE
     Indication: Product used for unknown indication
     Dosage: 0.25 MG
     Route: 042
     Dates: start: 20140115, end: 20140507
  15. PEPCID [Concomitant]
     Active Substance: FAMOTIDINE
     Indication: Product used for unknown indication
     Dosage: 20 (UNITS NOT SPECIFIED)
     Route: 042
     Dates: start: 20140115, end: 20140507
  16. PROCHLORPERAZINE MALEATE [Concomitant]
     Active Substance: PROCHLORPERAZINE MALEATE
     Indication: Product used for unknown indication
     Dosage: 40 MILLIGRAM DAILY; 10 MG EVERY 6 HOURS AS NEEDED
     Route: 048
  17. ZOFRAN [Concomitant]
     Active Substance: ONDANSETRON HYDROCHLORIDE
     Indication: Product used for unknown indication
     Dosage: 24 MILLIGRAM DAILY; 8 MG EVERY 8 HOURS
     Route: 048
  18. DECADRON [Concomitant]
     Active Substance: DEXAMETHASONE
     Indication: Product used for unknown indication
     Dosage: TAKE AS DIRECTED
     Route: 048
  19. FOSAPREPITANT DIMEGLUMINE [Concomitant]
     Active Substance: FOSAPREPITANT DIMEGLUMINE
     Indication: Product used for unknown indication
     Dosage: 150 MG
     Route: 042
     Dates: start: 20140115, end: 20140507
  20. HEPARIN LOCK FLUSH [Concomitant]
     Active Substance: HEPARIN SODIUM
     Indication: Product used for unknown indication
     Dosage: 5ML (OF 100 UNITS/ML)
     Route: 042
     Dates: start: 20140115, end: 20140507
  21. SODIUM CHLORIDE [Concomitant]
     Active Substance: SODIUM CHLORIDE
     Indication: Product used for unknown indication
     Dosage: 10 ML (OF 0.9 %)
     Route: 065
     Dates: start: 20140115, end: 20140507
  22. NEULASTA [Concomitant]
     Active Substance: PEGFILGRASTIM
     Indication: Product used for unknown indication
     Dosage: 6 MG
     Route: 058
     Dates: start: 20140116, end: 20140410
  23. BC Fast Pain Relief Pack [Concomitant]
     Indication: Product used for unknown indication
     Route: 048
  24. OMEPRAZOLE [Concomitant]
     Active Substance: OMEPRAZOLE
     Indication: Product used for unknown indication
     Route: 065

REACTIONS (20)
  - Alopecia areata [Not Recovered/Not Resolved]
  - Madarosis [Not Recovered/Not Resolved]
  - Cellulitis [Recovering/Resolving]
  - Hair texture abnormal [Not Recovered/Not Resolved]
  - Hair colour changes [Not Recovered/Not Resolved]
  - Stomatitis [Recovered/Resolved]
  - Rash [Recovered/Resolved]
  - Rash pruritic [Recovered/Resolved]
  - Rash vesicular [Recovered/Resolved]
  - Dyspepsia [Recovered/Resolved]
  - Bone pain [Recovered/Resolved]
  - Back pain [Unknown]
  - Urinary tract infection [Unknown]
  - Pyrexia [Recovered/Resolved]
  - Pain [Unknown]
  - Insomnia [Unknown]
  - Nausea [Unknown]
  - Ageusia [Unknown]
  - Weight decreased [Recovering/Resolving]
  - Skin ulcer [Recovering/Resolving]

NARRATIVE: CASE EVENT DATE: 20140101
